FAERS Safety Report 9254109 (Version 1)
Quarter: 2013Q2

REPORT INFORMATION
  Report Type: Spontaneous
  Country: US (occurrence: None)
  Receive Date: 20130422
  Receipt Date: 20130422
  Transmission Date: 20140414
  Serious: Yes (Hospitalization)
  Sender: FDA-Public Use
  Company Number: 2013PROUSA02708

PATIENT
  Age: 71 Year
  Sex: Male
  Weight: 81.6 kg

DRUGS (2)
  1. PROVENGE (SIPULEUCEL-T) SUSPENSION, 250ML [Suspect]
     Indication: PROSTATE CANCER METASTATIC
     Dosage: SINGLE
     Route: 042
     Dates: start: 20130307, end: 20130307
  2. IRON (IRON) [Concomitant]

REACTIONS (3)
  - Thrombocytopenia [None]
  - Anaemia [None]
  - Hypotension [None]
